FAERS Safety Report 9799987 (Version 2)
Quarter: 2015Q3

REPORT INFORMATION
  Report Type: Spontaneous
  Country: US (occurrence: US)
  Receive Date: 20140106
  Receipt Date: 20150806
  Transmission Date: 20151125
  Serious: No
  Sender: FDA-Public Use
  Company Number: US-GILEAD-2010-0030495

PATIENT
  Age: 35 Year
  Sex: Female
  Weight: 52.62 kg

DRUGS (4)
  1. FLOLAN [Concomitant]
     Active Substance: EPOPROSTENOL SODIUM
  2. LETAIRIS [Suspect]
     Active Substance: AMBRISENTAN
     Indication: PULMONARY ARTERIAL HYPERTENSION
     Route: 048
  3. COUMADIN [Concomitant]
     Active Substance: WARFARIN SODIUM
  4. CHILDRENS MULTIVITAMIN [Concomitant]

REACTIONS (1)
  - Swelling face [Unknown]
